FAERS Safety Report 25690897 (Version 1)
Quarter: 2025Q3

REPORT INFORMATION
  Report Type: Spontaneous
  Country: US (occurrence: None)
  Receive Date: 20250817
  Receipt Date: 20250817
  Transmission Date: 20251020
  Serious: Yes (unspecified)
  Sender: FDA-CTU
  Company Number: None

PATIENT
  Age: 71 Year
  Sex: Female
  Weight: 66.6 kg

DRUGS (10)
  1. REPATHA [Suspect]
     Active Substance: EVOLOCUMAB
     Indication: Blood cholesterol
     Dates: start: 20241024, end: 20250130
  2. LISINOPRIL [Concomitant]
     Active Substance: LISINOPRIL
  3. famodidine [Concomitant]
  4. DEVICE [Concomitant]
     Active Substance: DEVICE
  5. VITAMIN D3 [Concomitant]
     Active Substance: CHOLECALCIFEROL
  6. VITAMIN B-COMPLEX [Concomitant]
     Active Substance: DEXPANTHENOL\NIACINAMIDE\PYRIDOXINE HYDROCHLORIDE\RIBOFLAVIN 5^-PHOSPHATE SODIUM\THIAMINE HYDROCHLOR
  7. IRON [Concomitant]
     Active Substance: IRON
  8. AREDS2 [Concomitant]
  9. Lowes dose aspirin [Concomitant]
  10. HERBALS\TURMERIC [Concomitant]
     Active Substance: HERBALS\TURMERIC

REACTIONS (6)
  - Musculoskeletal stiffness [None]
  - Musculoskeletal stiffness [None]
  - Discomfort [None]
  - Movement disorder [None]
  - Neck pain [None]
  - Therapy cessation [None]

NARRATIVE: CASE EVENT DATE: 20250130
